FAERS Safety Report 6858339-6 (Version None)
Quarter: 2010Q3

REPORT INFORMATION
  Report Type: 
  Country: None (occurrence: None)
  Receive Date: 20100719
  Receipt Date: 20080418
  Transmission Date: 20110219
  Serious: Yes (Other)
  Sender: FDA-Public Use
  Company Number: US-PFIZER INC-2008011644

PATIENT
  Sex: Female
  Weight: 70.3 kg

DRUGS (4)
  1. CHANTIX [Suspect]
     Indication: SMOKING CESSATION THERAPY
     Dates: start: 20071101
  2. ALCOHOL [Suspect]
  3. AMBIEN [Concomitant]
     Dates: start: 20071001
  4. VICODIN [Concomitant]

REACTIONS (11)
  - DEPRESSION [None]
  - FATIGUE [None]
  - HYPERTENSION [None]
  - INSOMNIA [None]
  - IRRITABILITY [None]
  - MOOD SWINGS [None]
  - NAUSEA [None]
  - NIGHTMARE [None]
  - STRESS [None]
  - SUICIDAL IDEATION [None]
  - VOMITING [None]
